FAERS Safety Report 19310643 (Version 1)
Quarter: 2021Q2

REPORT INFORMATION
  Report Type: Spontaneous
  Country: SE (occurrence: SE)
  Receive Date: 20210526
  Receipt Date: 20210526
  Transmission Date: 20210717
  Serious: Yes (Death)
  Sender: FDA-Public Use
  Company Number: NVSC2021SE117736

PATIENT
  Age: 69 Year
  Sex: Female
  Weight: 74 kg

DRUGS (2)
  1. ATORBIR 40 MG FILMDRAGERADE TABLETTER [Suspect]
     Active Substance: ATORVASTATIN CALCIUM
     Indication: CEREBROVASCULAR ACCIDENT
     Dosage: 40 MG, QD (1 TABLETT/DAG)
     Route: 048
     Dates: start: 20190401, end: 202104
  2. ATORBIR 40 MG FILMDRAGERADE TABLETTER [Suspect]
     Active Substance: ATORVASTATIN CALCIUM
     Indication: HYPERCHOLESTEROLAEMIA
     Dosage: UNK
     Route: 065

REACTIONS (1)
  - Immune-mediated myositis [Fatal]

NARRATIVE: CASE EVENT DATE: 20210215
